FAERS Safety Report 21635611 (Version 1)
Quarter: 2022Q4

REPORT INFORMATION
  Report Type: Spontaneous
  Country: DE (occurrence: DE)
  Receive Date: 20221123
  Receipt Date: 20221123
  Transmission Date: 20230113
  Serious: Yes (Life-Threatening, Hospitalization)
  Sender: FDA-Public Use
  Company Number: DE-ADRED-07515-01

PATIENT
  Age: 65 Year
  Sex: Male

DRUGS (16)
  1. CANDESARTAN [Suspect]
     Active Substance: CANDESARTAN
     Indication: Product used for unknown indication
     Dosage: 16 MILLIGRAM, 1-0-1-0
     Route: 048
  2. GABAPENTIN [Concomitant]
     Active Substance: GABAPENTIN
     Dosage: 400 MG, 1-0-0.5-0
     Route: 048
  3. MEROPENEM [Concomitant]
     Active Substance: MEROPENEM
     Dosage: 1 G, 1-1-1-0
     Route: 048
  4. RISPERIDONE [Concomitant]
     Active Substance: RISPERIDONE
     Dosage: 1 MG, 1-0-1-0
     Route: 048
  5. PIRITRAMIDE [Concomitant]
     Active Substance: PIRITRAMIDE
     Dosage: 3.75 MG, AS NEEDED UPTO 3 TIMES A DAY
     Route: 042
  6. HYDROMORPHONE [Concomitant]
     Active Substance: HYDROMORPHONE
     Dosage: 40 MG, 1-0-1-0,
     Route: 048
  7. ASPIRIN [Concomitant]
     Active Substance: ASPIRIN
     Dosage: 100 MG, 1-0-0-0
     Route: 048
  8. ATORVASTATIN [Concomitant]
     Active Substance: ATORVASTATIN
     Dosage: 40 MG, 0-0-1-0
     Route: 048
  9. METHIONINE [Concomitant]
     Active Substance: METHIONINE
     Dosage: 500 MG, 1-0-1-0
     Route: 048
  10. AMITRIPTYLINE [Concomitant]
     Active Substance: AMITRIPTYLINE
     Dosage: 25 MG, 1-1-1-0
     Route: 048
  11. ENOXAPARIN [Concomitant]
     Active Substance: ENOXAPARIN
     Dosage: 0.4 ML, 0-0-1-0
     Route: 058
  12. SITAGLIPTIN [Concomitant]
     Active Substance: SITAGLIPTIN
     Dosage: 50 MG, 1-0-0-0
     Route: 048
  13. PANTOPRAZOLE SODIUM [Concomitant]
     Active Substance: PANTOPRAZOLE SODIUM
     Dosage: 40 MG, 1-0-1-0
     Route: 048
  14. HYDROMORPHONE [Concomitant]
     Active Substance: HYDROMORPHONE
     Dosage: 1.3 MILLIGRAM,  AS NEEDED
     Route: 048
  15. POLYETHYLENE GLYCOL 3350\POTASSIUM CHLORIDE\SODIUM BICARBONATE\SODIUM [Concomitant]
     Active Substance: POLYETHYLENE GLYCOL 3350\POTASSIUM CHLORIDE\SODIUM BICARBONATE\SODIUM CHLORIDE
     Dosage: 1-1-1-0,
     Route: 048
  16. BUPRENORPHINE [Concomitant]
     Active Substance: BUPRENORPHINE
     Dosage: 0.2 MG, AS REQUIRED 1 STROKE
     Route: 060

REACTIONS (8)
  - Pallor [Unknown]
  - Rhythm idioventricular [Unknown]
  - Disturbance in attention [Unknown]
  - Fall [Unknown]
  - Device malfunction [Unknown]
  - Cardiogenic shock [Unknown]
  - Hyperkalaemia [Unknown]
  - Acute kidney injury [Unknown]
